FAERS Safety Report 10448260 (Version 2)
Quarter: 2014Q3

REPORT INFORMATION
  Report Type: Report from Study
  Country: NL (occurrence: NL)
  Receive Date: 20140911
  Receipt Date: 20140911
  Transmission Date: 20150326
  Serious: Yes (Hospitalization)
  Sender: FDA-Public Use
  Company Number: US-ASTRAZENECA-2014SE00035

PATIENT
  Age: 257 Day
  Sex: Female

DRUGS (5)
  1. SYNAGIS [Suspect]
     Active Substance: PALIVIZUMAB
     Indication: RESPIRATORY SYNCYTIAL VIRUS TEST POSITIVE
     Route: 030
     Dates: start: 201309
  2. SYNAGIS [Suspect]
     Active Substance: PALIVIZUMAB
     Indication: RESPIRATORY SYNCYTIAL VIRUS TEST POSITIVE
     Route: 030
  3. FERRO FUMARAT [Concomitant]
     Indication: IRON DEFICIENCY
     Dosage: 20=1, SUSPENSION
     Route: 048
  4. SYNAGIS [Suspect]
     Active Substance: PALIVIZUMAB
     Indication: PREMATURE BABY
     Route: 030
     Dates: start: 201309
  5. SYNAGIS [Suspect]
     Active Substance: PALIVIZUMAB
     Indication: PREMATURE BABY
     Route: 030

REACTIONS (1)
  - Pseudocroup [Recovered/Resolved]

NARRATIVE: CASE EVENT DATE: 20131224
